FAERS Safety Report 8001489-1 (Version None)
Quarter: 2011Q4

REPORT INFORMATION
  Report Type: 
  Country: None (occurrence: None)
  Receive Date: 20111222
  Receipt Date: 20111212
  Transmission Date: 20120403
  Serious: Yes (Other)
  Sender: FDA-Public Use
  Company Number: TR-JNJFOC-20110505453

PATIENT
  Sex: Male
  Weight: 110 kg

DRUGS (5)
  1. METHOTREXATE [Concomitant]
     Route: 065
     Dates: start: 20090114, end: 20090603
  2. INFLIXIMAB, RECOMBINANT [Suspect]
     Indication: PSORIASIS
     Route: 042
     Dates: start: 20070313, end: 20100101
  3. USTEKINUMAB [Suspect]
     Indication: PSORIASIS
     Route: 058
  4. METHOTREXATE [Concomitant]
     Route: 065
     Dates: start: 20090610, end: 20100701
  5. INFLIXIMAB, RECOMBINANT [Suspect]
     Route: 042
     Dates: start: 20100106, end: 20100630

REACTIONS (2)
  - HEPATIC ENZYME INCREASED [None]
  - DRUG INEFFECTIVE [None]
